FAERS Safety Report 24936628 (Version 1)
Quarter: 2025Q1

REPORT INFORMATION
  Report Type: Spontaneous
  Country: US (occurrence: None)
  Receive Date: 20250205
  Receipt Date: 20250205
  Transmission Date: 20250409
  Serious: Yes (Other)
  Sender: FDA-CTU
  Company Number: None

PATIENT
  Age: 20 Year
  Sex: Female
  Weight: 66.8 kg

DRUGS (1)
  1. CEFTRIAXONE [Suspect]
     Active Substance: CEFTRIAXONE
     Route: 040
     Dates: start: 20250201, end: 20250201

REACTIONS (3)
  - Dyspnoea [None]
  - Throat irritation [None]
  - Refusal of treatment by patient [None]

NARRATIVE: CASE EVENT DATE: 20250201
